FAERS Safety Report 20679747 (Version 1)
Quarter: 2022Q2

REPORT INFORMATION
  Report Type: Spontaneous
  Country: US (occurrence: None)
  Receive Date: 20220405
  Receipt Date: 20220405
  Transmission Date: 20220720
  Serious: Yes (Disabling, Other)
  Sender: FDA-Public Use
  Company Number: None

PATIENT
  Age: 46 Year
  Sex: Male
  Weight: 132.75 kg

DRUGS (9)
  1. YESCARTA [Suspect]
     Active Substance: AXICABTAGENE CILOLEUCEL
     Indication: Follicular lymphoma
     Dates: start: 20190305, end: 20190305
  2. PRILOSEC [Concomitant]
     Active Substance: OMEPRAZOLE MAGNESIUM
  3. ABILIFY [Concomitant]
     Active Substance: ARIPIPRAZOLE
  4. CELEXA [Concomitant]
     Active Substance: CITALOPRAM HYDROBROMIDE
  5. VITAMIN D [Concomitant]
     Active Substance: VITAMIN D NOS
  6. GABAPENTIN [Concomitant]
     Active Substance: GABAPENTIN
  7. IgG infusions [Concomitant]
  8. vitaminB12 [Concomitant]
  9. FOLATE SODIUM [Concomitant]
     Active Substance: FOLATE SODIUM

REACTIONS (3)
  - Brain injury [None]
  - Dementia Alzheimer^s type [None]
  - Abnormal behaviour [None]

NARRATIVE: CASE EVENT DATE: 20190305
